FAERS Safety Report 23802145 (Version 1)
Quarter: 2024Q2

REPORT INFORMATION
  Report Type: Other
  Country: US (occurrence: None)
  Receive Date: 20240501
  Receipt Date: 20240501
  Transmission Date: 20240716
  Serious: Yes (Death, Hospitalization, Other)
  Sender: FDA-Public Use
  Company Number: US-ROCHE-3552831

PATIENT

DRUGS (10)
  1. MYCOPHENOLATE MOFETIL [Suspect]
     Active Substance: MYCOPHENOLATE MOFETIL
     Indication: Prophylaxis against transplant rejection
     Route: 065
  2. BELATACEPT [Suspect]
     Active Substance: BELATACEPT
     Indication: Prophylaxis against transplant rejection
     Dosage: ON DAYS 0, 7, 14, 28, 56, AND 84
     Route: 065
  3. BELATACEPT [Suspect]
     Active Substance: BELATACEPT
     Dosage: ON DAYS 112, 140, 168, 196, 224, 252, 280, 308, 336, AND 364.
     Route: 065
  4. METHYLPREDNISOLONE [Suspect]
     Active Substance: METHYLPREDNISOLONE
     Indication: Prophylaxis against transplant rejection
     Route: 042
  5. METHYLPREDNISOLONE [Suspect]
     Active Substance: METHYLPREDNISOLONE
     Dosage: AFTER TRANSPLANT, PARTICIPANTS WERE TREATED WITH METHYLPREDNISOLONE 0.5 MG/KG INTRAVENOUSLY TWICE DA
     Route: 042
  6. PREDNISONE [Suspect]
     Active Substance: PREDNISONE
     Indication: Prophylaxis against transplant rejection
     Dosage: THROUGH DAY 14
     Route: 048
  7. PREDNISONE [Suspect]
     Active Substance: PREDNISONE
     Dosage: THROUGH DAY 30
     Route: 048
  8. PREDNISONE [Suspect]
     Active Substance: PREDNISONE
     Dosage: THROUGH DAY 180
     Route: 048
  9. PREDNISONE [Suspect]
     Active Substance: PREDNISONE
     Dosage: THROUGH DAY 365
     Route: 048
  10. TACROLIMUS [Suspect]
     Active Substance: TACROLIMUS
     Indication: Prophylaxis against transplant rejection
     Dosage: ENTERALLY OR SUBLINGUALLY WITHIN THE FIRST 48 H AFTER TRANSPLANTATION. DOSED TO TARGET A TROUGH BLOO
     Route: 060

REACTIONS (36)
  - COVID-19 [Fatal]
  - Acute respiratory failure [Fatal]
  - Complications of transplanted lung [Fatal]
  - Restrictive allograft syndrome [Fatal]
  - Haemothorax [Fatal]
  - Cytomegalovirus infection [Unknown]
  - Respiratory tract infection bacterial [Unknown]
  - Postoperative wound infection [Unknown]
  - Pneumonia [Unknown]
  - Haemoptysis [Unknown]
  - Atrial fibrillation [Unknown]
  - Dysphagia [Unknown]
  - Nausea [Unknown]
  - Vomiting [Unknown]
  - Multiple injuries [Unknown]
  - Fracture [Unknown]
  - Headache [Unknown]
  - Syncope [Unknown]
  - Acute kidney injury [Unknown]
  - Peripheral ischaemia [Unknown]
  - Embolism venous [Unknown]
  - Postoperative thoracic procedure complication [Unknown]
  - Cardiac arrest [Unknown]
  - Cholecystitis acute [Unknown]
  - Mental status changes [Unknown]
  - Parainfluenzae virus infection [Unknown]
  - Chronic kidney disease [Unknown]
  - Diabetes mellitus [Unknown]
  - Hypertension [Unknown]
  - Hypercholesterolaemia [Unknown]
  - Neoplasm malignant [Unknown]
  - Urinary tract infection bacterial [Unknown]
  - Respiratory tract infection viral [Unknown]
  - Respiratory tract infection fungal [Unknown]
  - Respiratory tract infection viral [Unknown]
  - Herpes simplex [Unknown]
